FAERS Safety Report 8915142 (Version 2)
Quarter: 2013Q4

REPORT INFORMATION
  Report Type: Report from Study
  Country: US (occurrence: US)
  Receive Date: 20121118
  Receipt Date: 20131107
  Transmission Date: 20140711
  Serious: Yes (Hospitalization)
  Sender: FDA-Public Use
  Company Number: US-ELI_LILLY_AND_COMPANY-US201206000342

PATIENT
  Age: 78 Year
  Sex: Female

DRUGS (4)
  1. TERIPARATIDE [Suspect]
     Indication: OSTEOPOROSIS
     Dosage: 20 UG, QD
     Route: 065
     Dates: start: 20120526
  2. TERIPARATIDE [Suspect]
     Dosage: 20 UG, QD
     Route: 065
  3. TERIPARATIDE [Suspect]
     Dosage: 20 UG, QD
     Route: 065
  4. TERIPARATIDE [Suspect]
     Dosage: 20 UG, QD
     Route: 065

REACTIONS (12)
  - Hip fracture [Unknown]
  - Limb injury [Unknown]
  - Fall [Unknown]
  - Upper limb fracture [Unknown]
  - Headache [Unknown]
  - Upper limb fracture [Unknown]
  - Fall [Unknown]
  - Muscular weakness [Unknown]
  - Nervous system disorder [Unknown]
  - General physical health deterioration [Unknown]
  - Dizziness [Unknown]
  - Blood calcium increased [Unknown]
